FAERS Safety Report 7617041-3 (Version None)
Quarter: 2011Q3

REPORT INFORMATION
  Report Type: 
  Country: None (occurrence: None)
  Receive Date: 20110718
  Receipt Date: 20091120
  Transmission Date: 20111222
  Serious: Yes (Disabling, Other)
  Sender: FDA-Public Use
  Company Number: US-BAYER-200940887NA

PATIENT
  Age: 6 Day
  Sex: Female
  Weight: 2.5 kg

DRUGS (12)
  1. VERSED [Concomitant]
     Dosage: 0.5 MG, UNK
     Route: 042
     Dates: start: 20040505, end: 20040505
  2. PROTAMINE SULFATE [Concomitant]
     Dosage: 3 MG, UNK
     Route: 042
     Dates: start: 20040505, end: 20040505
  3. TRASYLOL [Suspect]
     Indication: PRODUCT USED FOR UNKNOWN INDICATION
     Dosage: UNK
     Dates: start: 20040505
  4. FENTANYL-100 [Concomitant]
     Dosage: 150 MG, ONCE
     Route: 042
     Dates: start: 20040505, end: 20040505
  5. HEPARIN [Concomitant]
     Dosage: 10000 U, UNK
     Route: 042
     Dates: start: 20040505, end: 20040505
  6. LEVOPHED [Concomitant]
     Dosage: 1 MG/HR, UNK
     Route: 042
     Dates: start: 20040505, end: 20040505
  7. MORPHINE [Concomitant]
     Dosage: 0.5 MG/HR, UNK
     Route: 042
     Dates: start: 20040505, end: 20040505
  8. SOLU-MEDROL [Concomitant]
     Dosage: 58 MG, UNK
     Route: 042
     Dates: start: 20040505, end: 20040505
  9. DOPAMINE HCL [Concomitant]
     Dosage: 1 MCG/HR
     Route: 042
     Dates: start: 20040501, end: 20040505
  10. PAVULON [Concomitant]
     Dosage: 1 MG, UNK
     Route: 042
     Dates: start: 20040505, end: 20040505
  11. OPTIRAY 350 [Concomitant]
     Dosage: 4.5 ML, UNK
     Route: 042
     Dates: start: 20040430
  12. ZINACEF [Concomitant]
     Dosage: 75 MG, UNK
     Route: 042
     Dates: start: 20040505, end: 20040505

REACTIONS (11)
  - MULTI-ORGAN FAILURE [None]
  - RENAL FAILURE [None]
  - PAIN [None]
  - INJURY [None]
  - DISABILITY [None]
  - UNEVALUABLE EVENT [None]
  - RENAL INJURY [None]
  - ANHEDONIA [None]
  - FEAR [None]
  - ANXIETY [None]
  - DEPRESSION [None]
